FAERS Safety Report 13895323 (Version 2)
Quarter: 2018Q4

REPORT INFORMATION
  Report Type: Spontaneous
  Country: GB (occurrence: GB)
  Receive Date: 20170823
  Receipt Date: 20181225
  Transmission Date: 20190204
  Serious: Yes (Disabling)
  Sender: FDA-Public Use
  Company Number: GB-ACCORD-057395

PATIENT
  Age: 42 Year
  Sex: Female
  Weight: 78 kg

DRUGS (2)
  1. HYOSCINE [Concomitant]
     Active Substance: SCOPOLAMINE
     Dates: start: 20170602, end: 20170603
  2. TOPIRAMATE. [Suspect]
     Active Substance: TOPIRAMATE
     Indication: PRODUCT USED FOR UNKNOWN INDICATION

REACTIONS (7)
  - Headache [Unknown]
  - Disturbance in attention [Unknown]
  - Confusional state [Recovering/Resolving]
  - Oropharyngeal pain [Unknown]
  - Diarrhoea [Unknown]
  - Malaise [Unknown]
  - Dizziness [Unknown]

NARRATIVE: CASE EVENT DATE: 20170707
